FAERS Safety Report 9936154 (Version 1)
Quarter: 2014Q1

REPORT INFORMATION
  Report Type: Spontaneous
  Country: BR (occurrence: BR)
  Receive Date: 20140228
  Receipt Date: 20140228
  Transmission Date: 20141002
  Serious: Yes (Other)
  Sender: FDA-Public Use
  Company Number: PHHY2014BR022350

PATIENT
  Sex: 0

DRUGS (3)
  1. OMNITROPE [Suspect]
     Dosage: 0.8 MG PER DAY
  2. OMNITROPE [Suspect]
     Dosage: 1.0 MG, PER DAY
  3. OMNITROPE [Suspect]
     Dosage: 0.4 MG, PER DAY

REACTIONS (2)
  - Convulsion [Unknown]
  - Intracranial pressure increased [Unknown]
